FAERS Safety Report 9779836 (Version 1)
Quarter: 2013Q4

REPORT INFORMATION
  Report Type: Spontaneous
  Country: US (occurrence: US)
  Receive Date: 20131223
  Receipt Date: 20131223
  Transmission Date: 20140711
  Serious: No
  Sender: FDA-Public Use
  Company Number: US-ENDO PHARMACEUTICALS INC.-ZOLP20130006

PATIENT
  Age: 78 Year
  Sex: Female

DRUGS (3)
  1. ZOLPIDEM TARTRATE TABLETS 10MG [Suspect]
     Indication: INSOMNIA
     Route: 048
     Dates: start: 201301, end: 2013
  2. ZOLPIDEM [Concomitant]
     Indication: INSOMNIA
     Dosage: 2.5-5 MG
     Route: 048
     Dates: end: 2013
  3. ZOLPIDEM [Concomitant]
     Dosage: UNKNOWN
     Route: 048
     Dates: start: 2013

REACTIONS (1)
  - Drug ineffective [Recovered/Resolved]
